FAERS Safety Report 20651819 (Version 1)
Quarter: 2022Q1

REPORT INFORMATION
  Report Type: Spontaneous
  Country: US (occurrence: US)
  Receive Date: 20220330
  Receipt Date: 20220330
  Transmission Date: 20220423
  Serious: Yes (Hospitalization)
  Sender: FDA-Public Use
  Company Number: US-APOTEX-2022AP005277

PATIENT
  Age: 19 Year
  Sex: Male

DRUGS (7)
  1. ARIPIPRAZOLE [Suspect]
     Active Substance: ARIPIPRAZOLE
     Indication: Schizophrenia
     Dosage: 5 MILLIGRAM, QD
     Route: 065
  2. ARIPIPRAZOLE [Suspect]
     Active Substance: ARIPIPRAZOLE
     Dosage: 10 MILLIGRAM, QD
     Route: 065
  3. ARIPIPRAZOLE [Suspect]
     Active Substance: ARIPIPRAZOLE
     Dosage: 15 MILLIGRAM, QD
     Route: 065
  4. ARIPIPRAZOLE [Suspect]
     Active Substance: ARIPIPRAZOLE
     Dosage: 20 MILLIGRAM, QD
     Route: 065
  5. HALOPERIDOL [Concomitant]
     Active Substance: HALOPERIDOL
     Indication: Schizophrenia
     Dosage: 10 MILLIGRAM, PRN
     Route: 048
  6. RISPERIDONE [Concomitant]
     Active Substance: RISPERIDONE
     Indication: Schizophrenia
     Dosage: 2 MILLIGRAM, PRN
     Route: 048
  7. LORAZEPAM [Concomitant]
     Active Substance: LORAZEPAM
     Indication: Schizophrenia
     Dosage: 4 MILLIGRAM, PRN
     Route: 048

REACTIONS (8)
  - Paranoia [Recovering/Resolving]
  - Condition aggravated [Recovering/Resolving]
  - Social avoidant behaviour [Recovering/Resolving]
  - Delusion [Recovering/Resolving]
  - Psychotic disorder [Recovering/Resolving]
  - Abnormal behaviour [Recovering/Resolving]
  - Emotional distress [Recovering/Resolving]
  - Irritability [Recovering/Resolving]
